FAERS Safety Report 5320950-1 (Version None)
Quarter: 2007Q3

REPORT INFORMATION
  Report Type: 
  Country: None (occurrence: None)
  Receive Date: 20070504
  Receipt Date: 20070409
  Transmission Date: 20080115
  Serious: No
  Sender: FDA-Public Use
  Company Number: 07-032

PATIENT
  Age: 74 Year
  Sex: Male
  Weight: 81.6475 kg

DRUGS (2)
  1. SULFAMETHOXAZOLE AND TRIMETHOPRIM [Suspect]
     Indication: URINE ANALYSIS ABNORMAL
     Dosage: 800 MG/160MG 1TAB 2X'S DAILY
     Dates: start: 20070406
  2. KADORA [Concomitant]

REACTIONS (4)
  - ASTHENIA [None]
  - HEADACHE [None]
  - PYREXIA [None]
  - VOMITING [None]
